FAERS Safety Report 6747801-2 (Version None)
Quarter: 2010Q2

REPORT INFORMATION
  Report Type: 
  Country: None (occurrence: None)
  Receive Date: 20100528
  Receipt Date: 20100517
  Transmission Date: 20101027
  Serious: Yes (Hospitalization, Other)
  Sender: FDA-Public Use
  Company Number: HK-PFIZER INC-2010051114

PATIENT
  Age: 82 Year
  Sex: Male

DRUGS (12)
  1. TOLTERODINE TARTRATE [Suspect]
     Indication: URGE INCONTINENCE
     Dosage: 2 MG, 2X/DAY
  2. ACETYLSALICYLIC ACID [Concomitant]
     Dosage: 80 MG, 1X/DAY
  3. CITALOPRAM [Concomitant]
     Dosage: 10 MG, UNK
  4. FAMOTIDINE [Concomitant]
     Dosage: 20 MG, UNK
  5. FOLIC ACID [Concomitant]
     Dosage: 5 MG, 1X/DAY
  6. ISOSORBIDE DINITRATE [Concomitant]
     Dosage: 10 MG, UNK
  7. LISINOPRIL [Concomitant]
     Dosage: 5 MG, 1X/DAY
  8. PANADOL [Concomitant]
     Dosage: 500 MG, 4X/DAY
  9. FRUSEMIDE [Concomitant]
     Dosage: 20 MG, 1X/DAY
  10. MERISLON [Concomitant]
     Dosage: 6 MG, UNK
  11. SENOKOT [Concomitant]
     Dosage: 15 MG ^NOCTE^ AS NEEDED
  12. NITROGLYCERIN [Concomitant]
     Dosage: UNK
     Route: 060

REACTIONS (14)
  - BLOOD CALCIUM DECREASED [None]
  - BLOOD POTASSIUM DECREASED [None]
  - BLOOD PRESSURE INCREASED [None]
  - CONFUSIONAL STATE [None]
  - DRY SKIN [None]
  - GASTROINTESTINAL SOUNDS ABNORMAL [None]
  - HEPATIC ENZYME ABNORMAL [None]
  - HYPONATRAEMIA [None]
  - OVERDOSE [None]
  - PUPILLARY REFLEX IMPAIRED [None]
  - PYREXIA [None]
  - SILICOSIS [None]
  - SOMNOLENCE [None]
  - TACHYPNOEA [None]
